FAERS Safety Report 8209835-0 (Version None)
Quarter: 2012Q1

REPORT INFORMATION
  Report Type: 
  Country: None (occurrence: None)
  Receive Date: 20120314
  Receipt Date: 20120313
  Transmission Date: 20120608
  Serious: Yes (Death)
  Sender: FDA-Public Use
  Company Number: PHHY2012HN022081

PATIENT
  Age: 82 Year
  Sex: Male

DRUGS (2)
  1. DIOVAN [Suspect]
     Dosage: 320 MG, UNK
  2. RASILEZ [Suspect]
     Dosage: 300 MG, UNK

REACTIONS (1)
  - DEATH [None]
